FAERS Safety Report 7733233-7 (Version None)
Quarter: 2011Q3

REPORT INFORMATION
  Report Type: 
  Country: None (occurrence: None)
  Receive Date: 20110907
  Receipt Date: 20110804
  Transmission Date: 20111222
  Serious: No
  Sender: FDA-Public Use
  Company Number: DK-BAYER-2011-068766

PATIENT
  Age: 37 Year
  Sex: Female
  Weight: 65 kg

DRUGS (1)
  1. MIRENA [Suspect]
     Indication: CONTRACEPTION
     Dosage: 20 MCG/24HR, CONT
     Route: 015
     Dates: start: 20110106, end: 20110530

REACTIONS (11)
  - BACK PAIN [None]
  - LIBIDO DECREASED [None]
  - DEPRESSED MOOD [None]
  - MIGRAINE [None]
  - JOINT SWELLING [None]
  - ABDOMINAL DISTENSION [None]
  - MENSTRUATION IRREGULAR [None]
  - SOMATOFORM DISORDER PREGNANCY [None]
  - ABDOMINAL PAIN [None]
  - ARTHRALGIA [None]
  - MENORRHAGIA [None]
